FAERS Safety Report 5223890-1 (Version None)
Quarter: 2007Q1

REPORT INFORMATION
  Report Type: 
  Country: None (occurrence: None)
  Receive Date: 20070130
  Receipt Date: 20070119
  Transmission Date: 20070707
  Serious: Yes (Death)
  Sender: FDA-Public Use
  Company Number: ES-PURDUE-GBR_2007_0002774

PATIENT
  Age: 70 Year
  Sex: Female

DRUGS (9)
  1. MST CONTINUS TABLETS 30 MG [Suspect]
     Indication: BACK PAIN
     Dosage: 60 MG, BID
     Route: 048
     Dates: start: 20061204, end: 20061205
  2. SEVREDOL TABLETS 10 MG [Suspect]
     Indication: BACK PAIN
     Dosage: 10 MG, UNK
     Route: 048
     Dates: start: 20061204, end: 20061205
  3. PRIMPERAN [Suspect]
     Indication: VOMITING
     Dosage: 2 ML, DAILY
     Route: 030
     Dates: start: 20061205, end: 20061205
  4. APOCARD [Concomitant]
     Indication: ATRIAL FIBRILLATION
     Dosage: 200 MG, BID
     Route: 048
     Dates: start: 20060228, end: 20061205
  5. CLEXANE [Concomitant]
     Indication: DRUG USE FOR UNKNOWN INDICATION
     Dosage: 40 MG, QID
     Route: 058
     Dates: start: 20061107, end: 20061205
  6. CARVEDILOL [Concomitant]
     Indication: DRUG USE FOR UNKNOWN INDICATION
     Dosage: 12 MG, BID
     Route: 048
     Dates: start: 20061107, end: 20061205
  7. ACTONEL [Concomitant]
     Indication: DRUG USE FOR UNKNOWN INDICATION
     Dosage: 35 MG, QID
     Route: 048
     Dates: end: 20061205
  8. OMEPRAZOLE [Concomitant]
     Indication: DRUG USE FOR UNKNOWN INDICATION
     Dosage: 40 MG, UNK
     Route: 048
     Dates: end: 20061205
  9. NATECAL D [Concomitant]
     Indication: DRUG USE FOR UNKNOWN INDICATION
     Route: 048
     Dates: end: 20061205

REACTIONS (7)
  - DRUG INTERACTION [None]
  - HYPERHIDROSIS [None]
  - NAUSEA [None]
  - RESPIRATORY DISORDER [None]
  - SNORING [None]
  - SOMNOLENCE [None]
  - VOMITING [None]
